FAERS Safety Report 13075452 (Version 2)
Quarter: 2017Q1

REPORT INFORMATION
  Report Type: Spontaneous
  Country: US (occurrence: US)
  Receive Date: 20161230
  Receipt Date: 20170103
  Transmission Date: 20170428
  Serious: No
  Sender: FDA-Public Use
  Company Number: US-HORIZON-VIM-0263-2016

PATIENT
  Age: 48 Year
  Sex: Male

DRUGS (3)
  1. VITAMINS [Concomitant]
     Active Substance: VITAMINS
  2. TYLENOL [Concomitant]
     Active Substance: ACETAMINOPHEN
  3. VIMOVO [Suspect]
     Active Substance: ESOMEPRAZOLE MAGNESIUM\NAPROXEN
     Indication: OSTEOARTHRITIS
     Dosage: 1 TABLET BID
     Dates: start: 2008

REACTIONS (4)
  - Discomfort [Unknown]
  - Mobility decreased [Unknown]
  - Pain [Unknown]
  - Limb injury [Unknown]
